FAERS Safety Report 4394106-3 (Version None)
Quarter: 2004Q2

REPORT INFORMATION
  Report Type: 
  Country: None (occurrence: None)
  Receive Date: 20040630
  Receipt Date: 20040618
  Transmission Date: 20050107
  Serious: Yes (Life-Threatening, Other)
  Sender: FDA-Public Use
  Company Number: 200410400BCA

PATIENT
  Age: 77 Year
  Sex: Male
  Weight: 68.0396 kg

DRUGS (10)
  1. GAMIMUNE N 10% [Suspect]
     Indication: NERVOUS SYSTEM DISORDER
     Dosage: 35 MG, INTRAVENOUS; SEE IMAGE
     Dates: start: 20040614
  2. GAMIMUNE N 10% [Suspect]
     Indication: NEUROPATHY PERIPHERAL
     Dosage: 35 MG, INTRAVENOUS; SEE IMAGE
     Dates: start: 20040614
  3. GAMIMUNE N [Suspect]
  4. GAMIMUNE N [Suspect]
  5. GAMIMUNE N [Concomitant]
  6. METOPROLOL [Concomitant]
  7. L-THYROXINE [Concomitant]
  8. NAPROXEN [Concomitant]
  9. ISOSORBIDE [Concomitant]
  10. SERAX [Concomitant]

REACTIONS (8)
  - BRADYCARDIA [None]
  - COMA [None]
  - EYE ROLLING [None]
  - HYPOTENSION [None]
  - INFUSION RELATED REACTION [None]
  - LOSS OF CONSCIOUSNESS [None]
  - PALLOR [None]
  - SKIN DISCOLOURATION [None]
